FAERS Safety Report 10264759 (Version 1)
Quarter: 2014Q2

REPORT INFORMATION
  Report Type: Spontaneous
  Country: US (occurrence: US)
  Receive Date: 20140627
  Receipt Date: 20140627
  Transmission Date: 20141212
  Serious: No
  Sender: FDA-Public Use
  Company Number: US-SHIRE-US201403301

PATIENT
  Sex: Female

DRUGS (2)
  1. VYVANSE [Suspect]
     Indication: PRODUCT USED FOR UNKNOWN INDICATION
     Dosage: UNK(HALF OF CAPSULE CONTENTS), UNKNOWN(SOMETIMES)
     Route: 048
  2. VYVANSE [Suspect]
     Dosage: 60 MG, 1X/DAY:QD
     Route: 048
     Dates: start: 2012

REACTIONS (3)
  - Incorrect dose administered [Not Recovered/Not Resolved]
  - No adverse event [Not Recovered/Not Resolved]
  - Product quality issue [Unknown]
